FAERS Safety Report 9786650 (Version 2)
Quarter: 2014Q1

REPORT INFORMATION
  Report Type: Report from Study
  Country: MX (occurrence: MX)
  Receive Date: 20131227
  Receipt Date: 20140103
  Transmission Date: 20141002
  Serious: Yes (Other)
  Sender: FDA-Public Use
  Company Number: MX-MERCK-1312MEX009638

PATIENT
  Age: 47 Year
  Sex: Female

DRUGS (3)
  1. RALTEGRAVIR POTASSIUM [Suspect]
     Indication: HIV INFECTION
     Dosage: 400 MG, BID
     Route: 048
  2. STUDY DRUG (UNSPECIFIED) [Suspect]
     Indication: HIV INFECTION
     Dosage: BMS-663068 1200 MG, QD
     Route: 048
     Dates: start: 20130207
  3. TENOFOVIR [Suspect]
     Indication: HIV INFECTION
     Dosage: 300 MG, QD
     Route: 048

REACTIONS (1)
  - Overdose [Recovered/Resolved]
